FAERS Safety Report 6459809-5 (Version None)
Quarter: 2009Q4

REPORT INFORMATION
  Report Type: 
  Country: None (occurrence: None)
  Receive Date: 20091128
  Receipt Date: 20091001
  Transmission Date: 20100525
  Serious: No
  Sender: FDA-Public Use
  Company Number: US-AMGEN-TCS367203

PATIENT
  Sex: Female

DRUGS (1)
  1. ENBREL [Suspect]
     Indication: RHEUMATOID ARTHRITIS
     Dates: start: 20060201, end: 20090901

REACTIONS (8)
  - BRONCHITIS [None]
  - BURNING SENSATION [None]
  - HYPERSENSITIVITY [None]
  - LIP SWELLING [None]
  - OROPHARYNGEAL PAIN [None]
  - PNEUMONIA [None]
  - RASH [None]
  - URTICARIA [None]
